FAERS Safety Report 23707326 (Version 1)
Quarter: 2024Q2

REPORT INFORMATION
  Report Type: Spontaneous
  Country: CN (occurrence: CN)
  Receive Date: 20240404
  Receipt Date: 20240404
  Transmission Date: 20240716
  Serious: Yes (Other)
  Sender: FDA-Public Use
  Company Number: CN-AMGEN-CHNSP2024064825

PATIENT
  Age: 45 Year
  Sex: Male

DRUGS (2)
  1. BLINATUMOMAB [Suspect]
     Active Substance: BLINATUMOMAB
     Indication: B precursor type acute leukaemia
     Dosage: 9 MICROGRAM, QD, FIRST DAY
     Route: 065
  2. BLINATUMOMAB [Suspect]
     Active Substance: BLINATUMOMAB
     Dosage: 9 MICROGRAM, QD, FOR REMAINING DAYS
     Route: 065

REACTIONS (2)
  - Myelosuppression [Unknown]
  - Cytokine release syndrome [Unknown]
